FAERS Safety Report 16000614 (Version 5)
Quarter: 2019Q4

REPORT INFORMATION
  Report Type: Spontaneous
  Country: US (occurrence: US)
  Receive Date: 20190225
  Receipt Date: 20191218
  Transmission Date: 20200122
  Serious: No
  Sender: FDA-Public Use
  Company Number: US-PFIZER INC-2019076848

PATIENT
  Age: 72 Year
  Sex: Female

DRUGS (2)
  1. CELONTIN [Suspect]
     Active Substance: METHSUXIMIDE
     Indication: CLONIC CONVULSION
  2. CELONTIN [Suspect]
     Active Substance: METHSUXIMIDE
     Indication: SEIZURE
     Dosage: 300 MG, EVERY 4 HRS(6 TIMES A DAY;1800MG DAILY,6 CAPSULES DAILY IN DIVIDED DOSES FOR ATLEAST 16YRS)
     Route: 048

REACTIONS (5)
  - Electroencephalogram abnormal [Unknown]
  - Asthenia [Unknown]
  - Therapeutic product effect incomplete [Unknown]
  - Stress [Unknown]
  - Fatigue [Unknown]
